FAERS Safety Report 20377415 (Version 5)
Quarter: 2022Q2

REPORT INFORMATION
  Report Type: Spontaneous
  Country: CA (occurrence: CA)
  Receive Date: 20220126
  Receipt Date: 20220428
  Transmission Date: 20220721
  Serious: Yes (Other)
  Sender: FDA-Public Use
  Company Number: CA-CELLTRION INC.-2021CA018503

PATIENT

DRUGS (11)
  1. INFLECTRA [Suspect]
     Active Substance: INFLIXIMAB-DYYB
     Indication: Colitis ulcerative
     Dosage: 400 MG EVERY 0, 2, 6 , THEN EVERY 8 WEEKS
     Route: 042
     Dates: start: 20211111, end: 20220121
  2. INFLECTRA [Suspect]
     Active Substance: INFLIXIMAB-DYYB
     Dosage: 400 MG EVERY 0, 2, 6 , THEN EVERY 8 WEEKS
     Route: 042
     Dates: start: 20211125
  3. INFLECTRA [Suspect]
     Active Substance: INFLIXIMAB-DYYB
     Dosage: 400 MG EVERY 0, 2, 6 , THEN EVERY 8 WEEKS
     Route: 042
     Dates: start: 20211211
  4. INFLECTRA [Suspect]
     Active Substance: INFLIXIMAB-DYYB
     Dosage: 400 MG (RESCUE DOSE)
     Route: 042
     Dates: start: 20211211, end: 20211211
  5. INFLECTRA [Suspect]
     Active Substance: INFLIXIMAB-DYYB
     Dosage: 400 MG EVERY 0, 2, 6 , THEN EVERY 8 WEEKS
     Route: 042
     Dates: start: 20220114
  6. INFLECTRA [Suspect]
     Active Substance: INFLIXIMAB-DYYB
     Dosage: 400 MG EVERY 0, 2, 6 , THEN EVERY 8 WEEKS
     Route: 042
     Dates: start: 20220121, end: 20220121
  7. CORTENEMA [Concomitant]
     Active Substance: HYDROCORTISONE
     Dosage: UNK
  8. FLAGYL [Concomitant]
     Active Substance: METRONIDAZOLE\METRONIDAZOLE HYDROCHLORIDE
     Dosage: UNK
  9. IMURAN [Concomitant]
     Active Substance: AZATHIOPRINE
     Dosage: UNK
  10. PREDNISONE [Concomitant]
     Active Substance: PREDNISONE
     Dosage: UNK
  11. SULFASALAZINE [Concomitant]
     Active Substance: SULFASALAZINE
     Dosage: UNK

REACTIONS (17)
  - Condition aggravated [Unknown]
  - Feeling drunk [Unknown]
  - Malaise [Not Recovered/Not Resolved]
  - Pain [Not Recovered/Not Resolved]
  - Lymphadenopathy [Not Recovered/Not Resolved]
  - Nausea [Not Recovered/Not Resolved]
  - Pelvic pain [Not Recovered/Not Resolved]
  - Lethargy [Not Recovered/Not Resolved]
  - Muscle strain [Unknown]
  - Pelvic floor muscle weakness [Not Recovered/Not Resolved]
  - Pyrexia [Unknown]
  - Body temperature increased [Unknown]
  - Influenza [Unknown]
  - Abdominal discomfort [Not Recovered/Not Resolved]
  - Fatigue [Not Recovered/Not Resolved]
  - Somnolence [Not Recovered/Not Resolved]
  - Off label use [Unknown]

NARRATIVE: CASE EVENT DATE: 20210101
